FAERS Safety Report 5452762-2 (Version None)
Quarter: 2007Q3

REPORT INFORMATION
  Report Type: 
  Country: None (occurrence: None)
  Receive Date: 20070914
  Receipt Date: 20070904
  Transmission Date: 20080115
  Serious: Yes (Life-Threatening, Hospitalization)
  Sender: FDA-Public Use
  Company Number: JP-SANOFI-SYNTHELABO-A01200707215

PATIENT
  Sex: Female
  Weight: 58 kg

DRUGS (12)
  1. DEXAMETHASONE SODIUM PHOSPHATE [Concomitant]
     Indication: PREMEDICATION
     Dosage: 8 MG
     Route: 041
     Dates: start: 20070315, end: 20070621
  2. GRANISETRON  HCL [Concomitant]
     Indication: PREMEDICATION
     Dosage: 3 MG
     Route: 041
     Dates: start: 20070315, end: 20070621
  3. ALLOPURINOL [Concomitant]
     Indication: GOUT
     Dosage: 100 MG
     Route: 048
  4. MAGNESIUM OXIDE [Concomitant]
     Indication: POSTOPERATIVE CARE
     Dosage: 330 MG
     Route: 048
  5. CLOSTRIDIUM BUTYRICUM COMBINED DRUG [Concomitant]
     Indication: POSTOPERATIVE CARE
     Dosage: 1 DF
     Route: 048
  6. INDAPAMIDE [Concomitant]
     Indication: HYPERTENSION
     Dosage: 1 MG
     Route: 048
  7. IMIDAPRIL HYDROCHLORIDE [Concomitant]
     Indication: HYPERTENSION
     Dosage: 5 MG
     Route: 048
  8. TORSEMIDE [Concomitant]
     Indication: HYPERTENSION
     Dosage: 8 MG
     Route: 048
  9. LEUCOVORIN CALCIUM [Suspect]
     Route: 041
     Dates: start: 20070621, end: 20070621
  10. OXALIPLATIN [Suspect]
     Indication: COLON CANCER
     Route: 041
     Dates: start: 20070621, end: 20070621
  11. FLUOROURACIL INJ [Suspect]
     Route: 040
     Dates: start: 20070621, end: 20070621
  12. FLUOROURACIL INJ [Suspect]
     Route: 041
     Dates: start: 20070621, end: 20070622

REACTIONS (1)
  - HEPATIC ENCEPHALOPATHY [None]
